FAERS Safety Report 4576422-5 (Version None)
Quarter: 2005Q1

REPORT INFORMATION
  Report Type: 
  Country: None (occurrence: None)
  Receive Date: 20050207
  Receipt Date: 20050131
  Transmission Date: 20050727
  Serious: Yes (Disabling)
  Sender: FDA-Public Use
  Company Number: CH-2004-031524

PATIENT

DRUGS (1)
  1. ULTRAVIST 300 [Suspect]
     Dosage: INTRAVENOUS
     Route: 042

REACTIONS (2)
  - DRUG CLEARANCE INCREASED [None]
  - HYPOTHYROIDISM [None]
